FAERS Safety Report 23382831 (Version 1)
Quarter: 2024Q1

REPORT INFORMATION
  Report Type: Spontaneous
  Country: US (occurrence: US)
  Receive Date: 20240109
  Receipt Date: 20240109
  Transmission Date: 20240410
  Serious: No
  Sender: FDA-Public Use
  Company Number: US-OCULAR THERAPEUTIX-2023OCX00009

PATIENT
  Age: 32 Year
  Sex: Male
  Weight: 117.02 kg

DRUGS (5)
  1. DEXTENZA [Suspect]
     Active Substance: DEXAMETHASONE
     Indication: Photorefractive keratectomy
     Dosage: 0.4 MG INSERTED THROUGH RIGHT PUNCTUM, ONCE
     Dates: start: 20230214, end: 20230227
  2. DEXTENZA [Suspect]
     Active Substance: DEXAMETHASONE
     Dosage: 0.4 MG INSERTED THROUGH LEFT PUNCTUM, ONCE
     Dates: start: 20230214
  3. ZYMAXID [Concomitant]
     Active Substance: GATIFLOXACIN
     Dosage: UNK OU (BOTH EYES), 3X/DAY
     Route: 047
     Dates: start: 20230214, end: 20230220
  4. REFRESH TEARS [Concomitant]
     Active Substance: CARBOXYMETHYLCELLULOSE SODIUM
     Dosage: UNK OU (BOTH EYES), EVERY 1 -2 HOURS OR PRN (AS NEEDED)
     Route: 047
     Dates: start: 20230214
  5. MAXALT [Concomitant]
     Active Substance: RIZATRIPTAN BENZOATE
     Dosage: UNK

REACTIONS (1)
  - Expulsion of medication [Recovered/Resolved]

NARRATIVE: CASE EVENT DATE: 20230221
